FAERS Safety Report 8884781 (Version 1)
Quarter: 2012Q4

REPORT INFORMATION
  Report Type: 
  Country: CA (occurrence: CA)
  Receive Date: 20121102
  Receipt Date: 20121102
  Transmission Date: 20130627
  Serious: Yes (Other)
  Sender: FDA-Public Use
  Company Number: CA-PFIZER INC-2012267762

PATIENT
  Age: 53 Year
  Sex: Male

DRUGS (5)
  1. CELEBREX [Suspect]
     Dosage: 100 mg, 1x/day
     Dates: start: 20000725
  2. PREVACID [Concomitant]
     Dosage: UNK
  3. VIOXX [Concomitant]
     Dosage: 25 mg, 1x/day
     Dates: start: 200203
  4. ACETAMINOPHEN [Concomitant]
     Dosage: UNK
  5. IBUPROFEN [Concomitant]
     Dosage: UNK

REACTIONS (3)
  - Ischaemic cerebral infarction [Unknown]
  - Cardiac failure [Unknown]
  - Renal failure [Unknown]
